FAERS Safety Report 25468305 (Version 1)
Quarter: 2025Q2

REPORT INFORMATION
  Report Type: Spontaneous
  Country: US (occurrence: US)
  Receive Date: 20250623
  Receipt Date: 20250623
  Transmission Date: 20250717
  Serious: No
  Sender: MERCK SHARP & DOHME LLC
  Company Number: US-009507513-2289469

PATIENT
  Age: 64 Year
  Sex: Female
  Weight: 53.5 kg

DRUGS (30)
  1. WINREVAIR [Suspect]
     Active Substance: SOTATERCEPT-CSRK
     Indication: Product used for unknown indication
     Route: 058
  2. WINREVAIR [Suspect]
     Active Substance: SOTATERCEPT-CSRK
  3. WINREVAIR [Suspect]
     Active Substance: SOTATERCEPT-CSRK
  4. WINREVAIR [Suspect]
     Active Substance: SOTATERCEPT-CSRK
  5. TREPROSTINIL [Suspect]
     Active Substance: TREPROSTINIL
     Indication: Pulmonary arterial hypertension
     Route: 048
     Dates: start: 20180823
  6. PEPCID [Concomitant]
     Active Substance: FAMOTIDINE
  7. FLUTICASONE PROPIONATE [Concomitant]
     Active Substance: FLUTICASONE PROPIONATE
  8. TACROLIMUS [Concomitant]
     Active Substance: TACROLIMUS
  9. HYDROQUINONE [Concomitant]
     Active Substance: HYDROQUINONE
  10. TRIAMCINOLONE ACETONIDE [Concomitant]
     Active Substance: TRIAMCINOLONE ACETONIDE
  11. TADALAFIL [Concomitant]
     Active Substance: TADALAFIL
  12. HYDROXYCHLOROQUINE SULFATE [Concomitant]
     Active Substance: HYDROXYCHLOROQUINE SULFATE
  13. POTASSIUM CHLORIDE [Concomitant]
     Active Substance: POTASSIUM CHLORIDE
  14. LETAIRIS [Concomitant]
     Active Substance: AMBRISENTAN
  15. IBUPROFEN [Concomitant]
     Active Substance: IBUPROFEN
  16. DICLOFENAC SODIUM [Concomitant]
     Active Substance: DICLOFENAC SODIUM
  17. QVAR REDIHALER [Concomitant]
     Active Substance: BECLOMETHASONE DIPROPIONATE
  18. ASPIRIN [Concomitant]
     Active Substance: ASPIRIN
  19. OXYGEN [Concomitant]
     Active Substance: OXYGEN
  20. PREDNISONE [Concomitant]
     Active Substance: PREDNISONE
  21. REPATHA [Concomitant]
     Active Substance: EVOLOCUMAB
  22. ONDANSETRON [Concomitant]
     Active Substance: ONDANSETRON
  23. CEFUROXIME [Concomitant]
     Active Substance: CEFUROXIME
  24. CELLCEPT [Concomitant]
     Active Substance: MYCOPHENOLATE MOFETIL
  25. CYCLOBENZAPRINE HYDROCHLORIDE [Concomitant]
     Active Substance: CYCLOBENZAPRINE HYDROCHLORIDE
  26. ORENITRAM [Suspect]
     Active Substance: TREPROSTINIL
     Indication: Pulmonary arterial hypertension
     Route: 048
  27. LASIX [Concomitant]
     Active Substance: FUROSEMIDE
  28. ZYRTEC [Concomitant]
     Active Substance: CETIRIZINE HYDROCHLORIDE
  29. ORENCIA [Concomitant]
     Active Substance: ABATACEPT
  30. PROAIR HFA [Concomitant]
     Active Substance: ALBUTEROL SULFATE

REACTIONS (1)
  - Injection site pain [Unknown]

NARRATIVE: CASE EVENT DATE: 20250513
